FAERS Safety Report 6415905 (Version 4)
Quarter: 2015Q4

REPORT INFORMATION
  Report Type: Spontaneous
  Country: US (occurrence: US)
  Receive Date: 20070917
  Receipt Date: 20151215
  Transmission Date: 20160305
  Serious: Yes (Other)
  Sender: FDA-Public Use
  Company Number: US-ASTRAZENECA-2006UW19429

PATIENT
  Age: 53 Year
  Sex: Female
  Weight: 56.2 kg

DRUGS (26)
  1. TOPROL XL [Suspect]
     Active Substance: METOPROLOL SUCCINATE
     Indication: HEART RATE IRREGULAR
     Route: 048
     Dates: start: 2003
  2. TOPROL XL [Suspect]
     Active Substance: METOPROLOL SUCCINATE
     Indication: HYPERTENSION
     Route: 048
     Dates: start: 2003
  3. TOPROL XL [Suspect]
     Active Substance: METOPROLOL SUCCINATE
     Indication: HEART VALVE INCOMPETENCE
     Dosage: GENERIC, 50 MG TWO TIMES A DAY
     Route: 065
     Dates: start: 2013
  4. SEROQUEL [Suspect]
     Active Substance: QUETIAPINE FUMARATE
     Indication: ANXIETY
     Dosage: 50 MG BID, 100 MG TABLET SPLIT IN HALF
     Route: 048
     Dates: start: 20060915, end: 20060930
  5. SEROQUEL [Suspect]
     Active Substance: QUETIAPINE FUMARATE
     Indication: MOOD SWINGS
     Dosage: 50 MG BID, 100 MG TABLET SPLIT IN HALF
     Route: 048
     Dates: start: 20060915, end: 20060930
  6. CRESTOR [Suspect]
     Active Substance: ROSUVASTATIN CALCIUM
     Indication: BLOOD CHOLESTEROL INCREASED
     Route: 048
     Dates: start: 2011
  7. ZOLOFT [Concomitant]
     Active Substance: SERTRALINE HYDROCHLORIDE
     Indication: DEPRESSION
     Dosage: 100 MG DAILY
     Route: 048
     Dates: start: 2002
  8. CEFTAN [Concomitant]
  9. NEXIUM [Suspect]
     Active Substance: ESOMEPRAZOLE MAGNESIUM
     Indication: GASTROOESOPHAGEAL REFLUX DISEASE
     Route: 048
     Dates: start: 2011
  10. TOPROL XL [Suspect]
     Active Substance: METOPROLOL SUCCINATE
     Indication: CARDIAC DISORDER
     Route: 048
     Dates: start: 2003
  11. SEROQUEL [Suspect]
     Active Substance: QUETIAPINE FUMARATE
     Indication: DEPRESSION
     Dosage: 50 MG BID, 100 MG TABLET SPLIT IN HALF
     Route: 048
     Dates: start: 20060915, end: 20060930
  12. LITHOBID [Concomitant]
     Active Substance: LITHIUM CARBONATE
  13. TOPROL XL [Suspect]
     Active Substance: METOPROLOL SUCCINATE
     Indication: HEART VALVE INCOMPETENCE
     Route: 048
     Dates: start: 2003
  14. TOPROL XL [Suspect]
     Active Substance: METOPROLOL SUCCINATE
     Indication: HEART RATE IRREGULAR
     Dosage: GENERIC, 50 MG TWO TIMES A DAY
     Route: 065
     Dates: start: 2013
  15. TOPROL XL [Suspect]
     Active Substance: METOPROLOL SUCCINATE
     Indication: HYPERTENSION
     Dosage: GENERIC, 50 MG TWO TIMES A DAY
     Route: 065
     Dates: start: 2013
  16. SEROQUEL [Suspect]
     Active Substance: QUETIAPINE FUMARATE
     Indication: BIPOLAR DISORDER
     Dosage: 50 MG BID, 100 MG TABLET SPLIT IN HALF
     Route: 048
     Dates: start: 20060915, end: 20060930
  17. CRESTOR [Suspect]
     Active Substance: ROSUVASTATIN CALCIUM
     Indication: BLOOD CHOLESTEROL INCREASED
     Route: 048
     Dates: start: 201510
  18. AMLODIPINE BESILATE [Concomitant]
     Active Substance: AMLODIPINE BESYLATE
  19. CLONAZEPAM. [Concomitant]
     Active Substance: CLONAZEPAM
  20. SYNTHROID [Concomitant]
     Active Substance: LEVOTHYROXINE SODIUM
  21. LYRICA [Concomitant]
     Active Substance: PREGABALIN
  22. TOPROL XL [Suspect]
     Active Substance: METOPROLOL SUCCINATE
     Indication: CARDIAC DISORDER
     Dosage: GENERIC, 50 MG TWO TIMES A DAY
     Route: 065
     Dates: start: 2013
  23. ASPIRIN. [Concomitant]
     Active Substance: ASPIRIN
  24. BENTYL [Concomitant]
     Active Substance: DICYCLOMINE HYDROCHLORIDE
  25. LITHIUM. [Concomitant]
     Active Substance: LITHIUM
     Indication: ANXIETY
     Route: 048
     Dates: start: 2002
  26. KLONOPIN [Concomitant]
     Active Substance: CLONAZEPAM
     Indication: ANXIETY
     Route: 048
     Dates: start: 2002

REACTIONS (20)
  - Anxiety [Recovered/Resolved]
  - Postoperative wound infection [Unknown]
  - Heart rate increased [Recovered/Resolved]
  - Nausea [Unknown]
  - Intentional product misuse [Unknown]
  - Drug dose omission [Unknown]
  - Blood pressure increased [Unknown]
  - Migraine [Unknown]
  - Feeling jittery [Unknown]
  - Feeling abnormal [Recovered/Resolved]
  - Postoperative hernia [Unknown]
  - Diabetes mellitus [Unknown]
  - Tension [Unknown]
  - Palpitations [Unknown]
  - Cardiac disorder [Unknown]
  - Fatigue [Unknown]
  - Drug ineffective [Unknown]
  - Irritability [Unknown]
  - Somnolence [Unknown]
  - Malaise [Unknown]

NARRATIVE: CASE EVENT DATE: 2006
